FAERS Safety Report 10765357 (Version 1)
Quarter: 2015Q1

REPORT INFORMATION
  Report Type: Spontaneous
  Country: US (occurrence: US)
  Receive Date: 20150205
  Receipt Date: 20150205
  Transmission Date: 20150721
  Serious: No
  Sender: FDA-Public Use
  Company Number: US-ACORDA-ACO_102953_2014

PATIENT
  Age: 69 Year
  Sex: Female

DRUGS (1)
  1. AMPYRA [Suspect]
     Active Substance: DALFAMPRIDINE
     Indication: GAIT DISTURBANCE
     Dosage: UNK, Q 12 HRS
     Route: 065

REACTIONS (3)
  - Gait disturbance [Recovered/Resolved]
  - Incorrect dose administered [Recovered/Resolved]
  - Limb discomfort [Recovered/Resolved]
